FAERS Safety Report 10767310 (Version 1)
Quarter: 2015Q1

REPORT INFORMATION
  Report Type: Spontaneous
  Country: US (occurrence: US)
  Receive Date: 20150205
  Receipt Date: 20150205
  Transmission Date: 20150721
  Serious: No
  Sender: FDA-Public Use
  Company Number: US-GALDERMA-US14000072

PATIENT
  Age: 23 Year
  Sex: Male

DRUGS (1)
  1. EPIDUO [Suspect]
     Active Substance: ADAPALENE\BENZOYL PEROXIDE
     Route: 061

REACTIONS (3)
  - Dermatitis [Unknown]
  - Dermatitis allergic [Unknown]
  - Erythema [Unknown]

NARRATIVE: CASE EVENT DATE: 201401
